FAERS Safety Report 20832216 (Version 1)
Quarter: 2022Q2

REPORT INFORMATION
  Report Type: Spontaneous
  Country: FR (occurrence: FR)
  Receive Date: 20220516
  Receipt Date: 20220516
  Transmission Date: 20220721
  Serious: Yes (Hospitalization, Other)
  Sender: FDA-Public Use
  Company Number: FR-AFSSAPS-PB20221332

PATIENT
  Age: 43 Year
  Sex: Male
  Weight: 80 kg

DRUGS (2)
  1. MEROPENEM [Suspect]
     Active Substance: MEROPENEM
     Indication: Leukocyturia
     Dosage: UNK
     Route: 042
     Dates: start: 20220413, end: 20220414
  2. MEROPENEM [Suspect]
     Active Substance: MEROPENEM
     Indication: Klebsiella infection

REACTIONS (3)
  - Thrombocytopenia [Recovering/Resolving]
  - Neutropenia [Recovering/Resolving]
  - Lymphopenia [Recovering/Resolving]

NARRATIVE: CASE EVENT DATE: 20220414
